FAERS Safety Report 4851386-5 (Version None)
Quarter: 2005Q4

REPORT INFORMATION
  Report Type: 
  Country: None (occurrence: None)
  Receive Date: 20051208
  Receipt Date: 20020926
  Transmission Date: 20060501
  Serious: Yes (Other)
  Sender: FDA-Public Use
  Company Number: 000340

PATIENT
  Age: 78 Year
  Sex: Female

DRUGS (15)
  1. ZEVALIN [Suspect]
     Indication: NON-HODGKIN'S LYMPHOMA STAGE III
     Dosage: 1X; IV
     Route: 042
     Dates: start: 20020101, end: 20020101
  2. ZEVALIN [Suspect]
     Indication: NON-HODGKIN'S LYMPHOMA STAGE III
     Dosage: 1X; IV
     Route: 042
     Dates: start: 20020808, end: 20020808
  3. NADROPARIN [Concomitant]
  4. PARACETAMOL [Concomitant]
  5. LORAZEPAM [Concomitant]
  6. BETAHISTINE [Concomitant]
  7. HYDROCHLORIDE [Concomitant]
  8. AMITRIPTYLINE [Concomitant]
  9. RUTOSIDE [Concomitant]
  10. ESTRADIOL VALERATE [Concomitant]
  11. BUDESONIDE [Concomitant]
  12. ALPRAZOLAM [Concomitant]
  13. TAZOCIN [Concomitant]
  14. DUOVENT [Concomitant]
  15. RITUXIMAB [Concomitant]

REACTIONS (6)
  - ABDOMINAL PAIN UPPER [None]
  - LEUKOPENIA [None]
  - LYMPHOPENIA [None]
  - NEUTROPENIA [None]
  - THROMBOCYTOPENIA [None]
  - URINARY TRACT INFECTION [None]
